FAERS Safety Report 7049088-2 (Version None)
Quarter: 2010Q4

REPORT INFORMATION
  Report Type: 
  Country: None (occurrence: None)
  Receive Date: 20101007
  Receipt Date: 20100924
  Transmission Date: 20110411
  Serious: Yes (Other)
  Sender: FDA-Public Use
  Company Number: US-1183402

PATIENT
  Age: 53 Year
  Sex: Female
  Weight: 68.0396 kg

DRUGS (1)
  1. DURATEARS OINTMENT [Suspect]
     Dosage: (OPHTHALMIC)
     Route: 047
     Dates: start: 20100915, end: 20100915

REACTIONS (3)
  - CONDITION AGGRAVATED [None]
  - CORNEAL DYSTROPHY [None]
  - EYE IRRITATION [None]
